FAERS Safety Report 7609007-4 (Version None)
Quarter: 2011Q3

REPORT INFORMATION
  Report Type: 
  Country: None (occurrence: None)
  Receive Date: 20110713
  Receipt Date: 20110713
  Transmission Date: 20111222
  Serious: Yes (Life-Threatening, Hospitalization, Other)
  Sender: FDA-Public Use
  Company Number: None

PATIENT
  Age: 48 Year
  Sex: Female
  Weight: 83.9154 kg

DRUGS (2)
  1. LEVAQUIN [Suspect]
     Indication: BRONCHITIS
     Dosage: 1 TABLE DAILY PO
     Route: 048
     Dates: start: 20110119, end: 20110124
  2. PREDNISONE [Suspect]
     Indication: BRONCHITIS
     Dosage: 1 TABLET TWICE DAILY PO
     Route: 048
     Dates: start: 20110119, end: 20110124

REACTIONS (14)
  - HYPOAESTHESIA [None]
  - FALL [None]
  - WALKING AID USER [None]
  - BURNING SENSATION [None]
  - WEIGHT BEARING DIFFICULTY [None]
  - ASTHENIA [None]
  - ARTHRALGIA [None]
  - NERVOUSNESS [None]
  - GAIT DISTURBANCE [None]
  - PARAESTHESIA [None]
  - PAIN [None]
  - CHILLS [None]
  - RASH [None]
  - ACTIVITIES OF DAILY LIVING IMPAIRED [None]
